FAERS Safety Report 4356504-3 (Version None)
Quarter: 2004Q2

REPORT INFORMATION
  Report Type: 
  Country: None (occurrence: None)
  Receive Date: 20040506
  Receipt Date: 20040428
  Transmission Date: 20050107
  Serious: Yes (Hospitalization)
  Sender: FDA-Public Use
  Company Number: 2004211181JP

PATIENT
  Age: 65 Year
  Sex: Female

DRUGS (3)
  1. AZULFIDINE EN-TABS [Suspect]
     Indication: RHEUMATOID ARTHRITIS
     Dosage: 1000 MG/DAY, ORAL
     Route: 048
     Dates: start: 20040401, end: 20040414
  2. SELBEX (TEPRENONE) [Concomitant]
  3. LOXONIN (LOXOPROFEN SODIUM) [Concomitant]

REACTIONS (2)
  - ANOREXIA [None]
  - INTERSTITIAL LUNG DISEASE [None]
